FAERS Safety Report 10969189 (Version 1)
Quarter: 2015Q1

REPORT INFORMATION
  Report Type: Spontaneous
  Country: GB (occurrence: None)
  Receive Date: 20150327
  Receipt Date: 20150327
  Transmission Date: 20150721
  Serious: Yes (Other)
  Sender: FDA-Public Use
  Company Number: GB-DEXPHARM-20150187

PATIENT
  Age: 41 Year
  Sex: Female
  Weight: 50.8 kg

DRUGS (3)
  1. OMEPRAZOLE. [Suspect]
     Active Substance: OMEPRAZOLE
     Indication: GASTROOESOPHAGEAL REFLUX DISEASE
     Dates: start: 2012
  2. ASPIRIN. [Concomitant]
     Active Substance: ASPIRIN
     Indication: GASTROOESOPHAGEAL REFLUX DISEASE
  3. BISOPROLOL [Concomitant]
     Active Substance: BISOPROLOL

REACTIONS (9)
  - Amenorrhoea [None]
  - Drug interaction [None]
  - Apathy [None]
  - Faeces discoloured [None]
  - Fatigue [None]
  - Tremor [None]
  - Skin discolouration [None]
  - Confusional state [None]
  - Constipation [None]

NARRATIVE: CASE EVENT DATE: 2014
